FAERS Safety Report 20561442 (Version 1)
Quarter: 2022Q1

REPORT INFORMATION
  Report Type: Report from Study
  Country: PK (occurrence: PK)
  Receive Date: 20220307
  Receipt Date: 20220307
  Transmission Date: 20220423
  Serious: Yes (Other)
  Sender: FDA-Public Use
  Company Number: PK-NOVARTISPH-NVSC2021PK151478

PATIENT
  Age: 72 Year
  Sex: Female

DRUGS (1)
  1. EXELON [Suspect]
     Active Substance: RIVASTIGMINE TARTRATE
     Indication: Dementia Alzheimer^s type
     Dosage: 1.5 MG, QD
     Route: 048
     Dates: start: 202106

REACTIONS (2)
  - Haematochezia [Unknown]
  - Blood urine present [Unknown]

NARRATIVE: CASE EVENT DATE: 20210601
